FAERS Safety Report 11757507 (Version 1)
Quarter: 2015Q4

REPORT INFORMATION
  Report Type: Spontaneous
  Country: GB (occurrence: GB)
  Receive Date: 20151120
  Receipt Date: 20151120
  Transmission Date: 20160304
  Serious: Yes (Other)
  Sender: FDA-Public Use
  Company Number: GB-WATSON-2015-24945

PATIENT
  Age: 91 Year
  Sex: Female

DRUGS (3)
  1. CLINDAMYCIN SANDOZ                 /00166002/ [Suspect]
     Active Substance: CLINDAMYCIN HYDROCHLORIDE
     Indication: PRODUCT USED FOR UNKNOWN INDICATION
     Dosage: 150 MG, UNK (HARD GELATIN CAPSULE )
     Route: 048
     Dates: start: 20150929, end: 20150929
  2. OMEPRAZOLE (UNKNOWN) [Suspect]
     Active Substance: OMEPRAZOLE
     Indication: PRODUCT USED FOR UNKNOWN INDICATION
     Dosage: UNK
     Route: 065
  3. WARFARIN [Concomitant]
     Active Substance: WARFARIN
     Indication: PRODUCT USED FOR UNKNOWN INDICATION
     Dosage: UNK
     Route: 065

REACTIONS (4)
  - Rash macular [Unknown]
  - Rash generalised [Unknown]
  - Pruritus [Unknown]
  - Skin ulcer [Unknown]

NARRATIVE: CASE EVENT DATE: 20150930
